FAERS Safety Report 20126163 (Version 1)
Quarter: 2021Q4

REPORT INFORMATION
  Report Type: Report from Study
  Country: DE (occurrence: DE)
  Receive Date: 20211129
  Receipt Date: 20211129
  Transmission Date: 20220303
  Serious: Yes (Other)
  Sender: FDA-Public Use
  Company Number: DE-VIIV HEALTHCARE ULC-DE2021EME241111

PATIENT
  Age: 52 Year
  Sex: Male

DRUGS (1)
  1. DOLUTEGRAVIR SODIUM\RILPIVIRINE HYDROCHLORIDE [Suspect]
     Active Substance: DOLUTEGRAVIR SODIUM\RILPIVIRINE HYDROCHLORIDE
     Indication: HIV infection
     Dosage: UNK
     Dates: start: 20181201

REACTIONS (2)
  - Pathogen resistance [Unknown]
  - Viral mutation identified [Unknown]

NARRATIVE: CASE EVENT DATE: 20200901
